FAERS Safety Report 6750055-4 (Version None)
Quarter: 2010Q2

REPORT INFORMATION
  Report Type: 
  Country: None (occurrence: None)
  Receive Date: 20100601
  Receipt Date: 20100520
  Transmission Date: 20101027
  Serious: Yes (Other)
  Sender: FDA-Public Use
  Company Number: JP-PFIZER INC-2010048677

PATIENT
  Age: 65 Year
  Sex: Male

DRUGS (4)
  1. ZYVOX [Suspect]
     Indication: STAPHYLOCOCCAL INFECTION
     Dosage: 600 MG, 2X/DAY
     Route: 042
     Dates: start: 20100326, end: 20100412
  2. ZYVOX [Suspect]
     Dosage: UNK
     Route: 048
     Dates: start: 20100413, end: 20100420
  3. CRAVIT [Suspect]
     Dosage: 500 MG/DAY
     Route: 048
     Dates: start: 20100413, end: 20100419
  4. ALENDRONATE SODIUM [Concomitant]
     Dosage: UNK
     Route: 048
     Dates: start: 20100414

REACTIONS (3)
  - DYSGEUSIA [None]
  - DYSKINESIA [None]
  - STOMATITIS [None]
